FAERS Safety Report 8277645-4 (Version None)
Quarter: 2012Q2

REPORT INFORMATION
  Report Type: 
  Country: None (occurrence: None)
  Receive Date: 20120412
  Receipt Date: 20120404
  Transmission Date: 20120825
  Serious: Yes (Other)
  Sender: FDA-Public Use
  Company Number: JP-VERTEX PHARMACEUTICALS INC.-AE-2012-004966

PATIENT
  Age: 60 Year
  Sex: Male

DRUGS (5)
  1. RIBAVIRIN [Concomitant]
     Indication: HEPATITIS C
     Route: 048
     Dates: start: 20120209, end: 20120212
  2. TELAVIC (TELAPREVIR) [Suspect]
     Indication: HEPATITIS C
     Route: 048
     Dates: start: 20120209, end: 20120212
  3. TELAVIC (TELAPREVIR) [Suspect]
     Route: 048
     Dates: start: 20120214
  4. INTERFERON [Concomitant]
     Indication: HEPATITIS C
     Route: 051
     Dates: start: 20120209
  5. RIBAVIRIN [Concomitant]
     Route: 048
     Dates: start: 20120214

REACTIONS (1)
  - SKIN EXFOLIATION [None]
